FAERS Safety Report 6570164-2 (Version None)
Quarter: 2010Q1

REPORT INFORMATION
  Report Type: 
  Country: None (occurrence: None)
  Receive Date: 20100125
  Receipt Date: 20090826
  Transmission Date: 20100710
  Serious: Yes (Hospitalization)
  Sender: FDA-Public Use
  Company Number: 2009BI027472

PATIENT
  Age: 50 Year
  Sex: Female
  Weight: 62.1428 kg

DRUGS (3)
  1. TYSABRI [Suspect]
     Indication: MULTIPLE SCLEROSIS
     Dosage: 300 MG; QM; IV
     Route: 042
     Dates: start: 20070301, end: 20090826
  2. BETASERON [Concomitant]
  3. COPAXONE [Concomitant]

REACTIONS (8)
  - DIZZINESS [None]
  - DYSPNOEA [None]
  - FATIGUE [None]
  - HAEMOGLOBIN DECREASED [None]
  - INFLUENZA LIKE ILLNESS [None]
  - LIVER INJURY [None]
  - OEDEMA PERIPHERAL [None]
  - TREMOR [None]
